FAERS Safety Report 5487358-X (Version None)
Quarter: 2007Q4

REPORT INFORMATION
  Report Type: 
  Country: None (occurrence: None)
  Receive Date: 20071015
  Receipt Date: 20071004
  Transmission Date: 20080405
  Serious: Yes (Other)
  Sender: FDA-Public Use
  Company Number: 2007AL004248

PATIENT
  Age: 58 Year
  Sex: Female

DRUGS (11)
  1. DEXAMETHASONE [Suspect]
     Indication: EYE OPERATION
     Dates: start: 20070614
  2. DEXAMETHASONE [Suspect]
     Indication: POSTOPERATIVE CARE
     Dates: start: 20070614
  3. GLYCEROL 2.6% [Concomitant]
  4. POVIDONE IODINE [Concomitant]
  5. LIDOCAINE [Concomitant]
  6. OCUFEN [Concomitant]
  7. OFLOXACIN [Concomitant]
  8. CYCLOPENTOLATE HCL [Concomitant]
  9. PHENYLEPHRINE [Concomitant]
  10. PROXYMETACAINE [Concomitant]
  11. HYALURONATE SODIUM [Concomitant]

REACTIONS (1)
  - TOXIC ANTERIOR SEGMENT SYNDROME [None]
